FAERS Safety Report 5688814-1 (Version None)
Quarter: 2008Q1

REPORT INFORMATION
  Report Type: 
  Country: None (occurrence: None)
  Receive Date: 20080331
  Receipt Date: 20010608
  Transmission Date: 20080703
  Serious: Yes (Death, Other)
  Sender: FDA-Public Use
  Company Number: AU-ROCHE-261955

PATIENT
  Age: 29 Year
  Sex: Male

DRUGS (6)
  1. RIVOTRIL [Suspect]
     Indication: DRUG USE FOR UNKNOWN INDICATION
     Route: 048
     Dates: start: 19970701
  2. RIVOTRIL [Suspect]
     Dosage: REDUCED DOSE.
     Route: 048
  3. LAMICTAL [Suspect]
     Indication: DRUG USE FOR UNKNOWN INDICATION
     Route: 048
     Dates: start: 19920121, end: 20000707
  4. LAMICTAL [Suspect]
     Route: 048
     Dates: start: 20000708, end: 20000712
  5. NEURONTIN [Suspect]
     Indication: DRUG USE FOR UNKNOWN INDICATION
     Route: 048
     Dates: start: 19940630, end: 20000712
  6. LIPITOR [Suspect]
     Indication: DRUG USE FOR UNKNOWN INDICATION
     Route: 048
     Dates: start: 19991222, end: 20000712

REACTIONS (2)
  - DYSKINESIA [None]
  - SUDDEN UNEXPLAINED DEATH IN EPILEPSY [None]
